FAERS Safety Report 7456103-0 (Version None)
Quarter: 2011Q2

REPORT INFORMATION
  Report Type: 
  Country: None (occurrence: None)
  Receive Date: 20110426
  Receipt Date: 20110411
  Transmission Date: 20111010
  Serious: Yes (Death)
  Sender: FDA-Public Use
  Company Number: 2011P1005923

PATIENT
  Age: 54 Year
  Sex: Male

DRUGS (1)
  1. FENTANYL CITRATE [Suspect]
     Indication: DRUG DIVERSION

REACTIONS (1)
  - OVERDOSE [None]
